FAERS Safety Report 23469449 (Version 1)
Quarter: 2024Q1

REPORT INFORMATION
  Report Type: Spontaneous
  Country: JP (occurrence: JP)
  Receive Date: 20240202
  Receipt Date: 20240202
  Transmission Date: 20240410
  Serious: Yes (Death, Other)
  Sender: FDA-Public Use
  Company Number: JP-GENMAB-2023-02512AA

PATIENT
  Age: 65 Year
  Sex: Female

DRUGS (1)
  1. EPKINLY [Suspect]
     Active Substance: EPCORITAMAB-BYSP
     Indication: Diffuse large B-cell lymphoma
     Dosage: 0.16 MILLIGRAM, SINGLE
     Dates: start: 20231214, end: 20231214

REACTIONS (4)
  - Diffuse large B-cell lymphoma [Fatal]
  - C-reactive protein increased [Not Recovered/Not Resolved]
  - Hypercalcaemia [Unknown]
  - Nausea [Unknown]

NARRATIVE: CASE EVENT DATE: 20231218
